FAERS Safety Report 11074544 (Version 1)
Quarter: 2015Q2

REPORT INFORMATION
  Report Type: Spontaneous
  Country: GB (occurrence: GB)
  Receive Date: 20150429
  Receipt Date: 20150429
  Transmission Date: 20150821
  Serious: Yes (Other)
  Sender: FDA-Public Use
  Company Number: GB-BIOGENIDEC-2015BI055150

PATIENT
  Sex: Female

DRUGS (1)
  1. TYSABRI [Suspect]
     Active Substance: NATALIZUMAB
     Indication: MULTIPLE SCLEROSIS
     Route: 042
     Dates: start: 2011

REACTIONS (13)
  - Malaise [Unknown]
  - Depression suicidal [Unknown]
  - Central nervous system lesion [Unknown]
  - Blood urine present [Unknown]
  - Drug intolerance [Not Recovered/Not Resolved]
  - White blood cell count increased [Unknown]
  - Asthenia [Not Recovered/Not Resolved]
  - Throat tightness [Unknown]
  - Epistaxis [Unknown]
  - Multiple sclerosis relapse [Unknown]
  - Haemoptysis [Unknown]
  - Depressed mood [Unknown]
  - Fatigue [Not Recovered/Not Resolved]

NARRATIVE: CASE EVENT DATE: 201412
